FAERS Safety Report 6972453-6 (Version None)
Quarter: 2010Q3

REPORT INFORMATION
  Report Type: 
  Country: None (occurrence: None)
  Receive Date: 20100909
  Receipt Date: 20100903
  Transmission Date: 20110219
  Serious: Yes (Other)
  Sender: FDA-Public Use
  Company Number: PHHY2010JP58802

PATIENT
  Sex: Female

DRUGS (8)
  1. DIOVAN [Suspect]
     Dosage: 80 MG ONCE DAILY
     Route: 048
     Dates: start: 20080218, end: 20100430
  2. OLMETEC [Concomitant]
     Indication: HYPERTENSION
     Dosage: 20MG, UNK
     Route: 048
     Dates: start: 20060424, end: 20080217
  3. MANIDIPINE HYDROCHLORIDE [Concomitant]
     Indication: HYPERTENSION
     Dosage: 10G, UNK
     Route: 048
     Dates: start: 20090321
  4. EPL [Concomitant]
     Dosage: 750MG , UNK
     Route: 048
     Dates: start: 20060424
  5. URSO 250 [Concomitant]
     Dosage: 300MG, UNK
     Route: 048
     Dates: start: 20060424
  6. PROPIVERINE HYDROCHLORIDE [Concomitant]
     Dosage: 20MG, UNK
     Route: 048
     Dates: start: 20060424
  7. JUVELA [Concomitant]
     Dosage: 150MG, UNK
     Route: 048
     Dates: start: 20060424
  8. BOFU-TSUSHO-SAN [Concomitant]
     Dosage: 7.5G, UNK
     Route: 048
     Dates: start: 20060424

REACTIONS (2)
  - LUNG NEOPLASM MALIGNANT [None]
  - METASTASES TO CENTRAL NERVOUS SYSTEM [None]
